FAERS Safety Report 8495082-4 (Version None)
Quarter: 2012Q2

REPORT INFORMATION
  Report Type: 
  Country: None (occurrence: None)
  Receive Date: 20120627
  Receipt Date: 20120613
  Transmission Date: 20120825
  Serious: Yes (Hospitalization)
  Sender: FDA-Public Use
  Company Number: 2011SP003512

PATIENT
  Age: 45 Year
  Sex: Male

DRUGS (7)
  1. REBETOL [Suspect]
     Indication: HEPATITIS C
     Dosage: 1200 MG;QD;PO
     Route: 048
     Dates: start: 20100616, end: 20110106
  2. CEPHALEXIN [Concomitant]
  3. CELEXA [Concomitant]
  4. INTRON A [Suspect]
     Indication: HEPATITIS C
     Dosage: 1.5 MCG/KG;QW;SC
     Route: 058
     Dates: start: 20100615, end: 20101124
  5. SULFAMETHAXAZOLE [Concomitant]
  6. SPIRONOLACTONE [Concomitant]
  7. HYDROCODONE BITARTRATE [Concomitant]

REACTIONS (5)
  - CELLULITIS [None]
  - FOREIGN BODY [None]
  - STAPHYLOCOCCAL ABSCESS [None]
  - THROMBOCYTOPENIA [None]
  - PERINEAL ABSCESS [None]
